FAERS Safety Report 9464788 (Version 3)
Quarter: 2013Q3

REPORT INFORMATION
  Report Type: Spontaneous
  Country: JP (occurrence: JP)
  Receive Date: 20130819
  Receipt Date: 20130910
  Transmission Date: 20140515
  Serious: Yes (Other)
  Sender: FDA-Public Use
  Company Number: JP-GLAXOSMITHKLINE-B0915871A

PATIENT
  Age: 35 Year
  Sex: Female
  Weight: 50 kg

DRUGS (11)
  1. LAMICTAL [Suspect]
     Indication: BIPOLAR DISORDER
     Route: 048
     Dates: start: 201211
  2. LAMICTAL [Suspect]
     Indication: BIPOLAR DISORDER
     Route: 048
  3. LAMICTAL [Suspect]
     Indication: BIPOLAR DISORDER
     Dosage: 50MG PER DAY
     Route: 048
     Dates: start: 20130105, end: 20130219
  4. LAMICTAL [Suspect]
     Indication: BIPOLAR DISORDER
     Dosage: 50MG TWICE PER DAY
     Route: 048
     Dates: start: 20130220, end: 20130227
  5. LAMICTAL [Suspect]
     Indication: BIPOLAR DISORDER
     Dosage: 100MG TWICE PER DAY
     Route: 048
     Dates: start: 20130228, end: 201306
  6. LAMICTAL [Suspect]
     Indication: BIPOLAR DISORDER
     Route: 048
  7. LAMICTAL [Suspect]
     Indication: BIPOLAR DISORDER
     Route: 048
     Dates: start: 201306, end: 20130708
  8. LODOPIN [Concomitant]
     Indication: SEDATIVE THERAPY
     Dosage: 50MG TWICE PER DAY
     Route: 048
  9. LEXAPRO [Concomitant]
     Indication: ANTIDEPRESSANT THERAPY
     Dosage: 10MG PER DAY
     Route: 048
  10. THYRADIN S [Concomitant]
     Indication: AUTOIMMUNE THYROIDITIS
     Dosage: 25MCG PER DAY
     Route: 048
  11. INSULIN [Concomitant]
     Indication: TYPE 1 DIABETES MELLITUS
     Route: 058

REACTIONS (10)
  - Convulsion [Recovering/Resolving]
  - Bipolar I disorder [Unknown]
  - Epilepsy [Unknown]
  - Loss of consciousness [Unknown]
  - Epileptic aura [Unknown]
  - Headache [Unknown]
  - Disorientation [Unknown]
  - Somnolence [Unknown]
  - Electroencephalogram abnormal [Unknown]
  - Gait disturbance [Unknown]
